FAERS Safety Report 13010409 (Version 1)
Quarter: 2016Q4

REPORT INFORMATION
  Report Type: Spontaneous
  Country: DK (occurrence: DK)
  Receive Date: 20161208
  Receipt Date: 20161208
  Transmission Date: 20170207
  Serious: Yes (Death, Life-Threatening, Hospitalization)
  Sender: FDA-Public Use
  Company Number: PHHY2016DK064360

PATIENT
  Age: 80 Year
  Sex: Female

DRUGS (3)
  1. PREDNISOLON [Concomitant]
     Active Substance: PREDNISOLONE
     Indication: OSTEOPENIA
     Dosage: 75 MG, QD
     Route: 065
  2. ALENDRONATE [Concomitant]
     Active Substance: ALENDRONATE SODIUM
     Indication: OSTEOPENIA
     Route: 065
     Dates: start: 20160108
  3. METHOTREXATE (METHOTREXATE SODIUM) [Suspect]
     Active Substance: METHOTREXATE SODIUM
     Indication: ARTHRITIS
     Dosage: 2.5 MG, QW
     Route: 048
     Dates: start: 201602, end: 20160320

REACTIONS (7)
  - Depressed level of consciousness [Not Recovered/Not Resolved]
  - Malaise [Recovered/Resolved]
  - Pyrexia [Unknown]
  - Alveolitis [Fatal]
  - Respiratory failure [Fatal]
  - Influenza like illness [Unknown]
  - Dyspnoea [Not Recovered/Not Resolved]

NARRATIVE: CASE EVENT DATE: 20160223
